FAERS Safety Report 4984177-5 (Version None)
Quarter: 2006Q2

REPORT INFORMATION
  Report Type: 
  Country: None (occurrence: None)
  Receive Date: 20060425
  Receipt Date: 20060425
  Transmission Date: 20061013
  Serious: Yes (Other)
  Sender: FDA-Public Use
  Company Number: None

PATIENT
  Age: 59 Year
  Sex: Female

DRUGS (1)
  1. LYRICA [Suspect]
     Dosage: 100MG  TWICE DAILY  PO
     Route: 048
     Dates: start: 20060410, end: 20060419

REACTIONS (4)
  - DIARRHOEA [None]
  - DIFFICULTY IN WALKING [None]
  - FAECES DISCOLOURED [None]
  - OEDEMA [None]
